FAERS Safety Report 10222834 (Version 1)
Quarter: 2014Q2

REPORT INFORMATION
  Report Type: Report from Study
  Country: DE (occurrence: DE)
  Receive Date: 20140606
  Receipt Date: 20140606
  Transmission Date: 20141212
  Serious: Yes (Hospitalization)
  Sender: FDA-Public Use
  Company Number: DE-CELGENEUS-062-21660-14054536

PATIENT
  Age: 70 Year
  Sex: 0
  Weight: 48 kg

DRUGS (5)
  1. ABRAXANE [Suspect]
     Indication: BREAST CANCER METASTATIC
     Route: 041
     Dates: start: 20140430
  2. CLEXANE [Concomitant]
     Indication: THROMBOSIS PROPHYLAXIS
     Route: 065
     Dates: start: 20140310
  3. PRACTOCLISOL [Concomitant]
     Indication: CONSTIPATION
     Route: 065
     Dates: start: 20140310, end: 20140310
  4. VITAMIN ENRICHED INFUSION [Concomitant]
     Indication: GENERAL PHYSICAL HEALTH DETERIORATION
     Route: 041
     Dates: start: 20140310, end: 20140313
  5. ZOMETA [Concomitant]
     Indication: METASTASES TO BONE
     Route: 065
     Dates: start: 20140221, end: 20140221

REACTIONS (2)
  - Constipation [Recovered/Resolved]
  - Malaise [Recovered/Resolved]
